FAERS Safety Report 8236596-1 (Version None)
Quarter: 2012Q1

REPORT INFORMATION
  Report Type: 
  Country: None (occurrence: None)
  Receive Date: 20120327
  Receipt Date: 20120315
  Transmission Date: 20120608
  Serious: Yes (Other)
  Sender: FDA-Public Use
  Company Number: US-MYLANLABS-2012S1003153

PATIENT
  Age: 34 Year
  Sex: Female

DRUGS (3)
  1. AMNESTEEM [Suspect]
     Route: 048
     Dates: start: 20111116, end: 20120207
  2. ORAL CONTRACEPTIVE NOS [Concomitant]
  3. DOXYCYCLINE [Concomitant]

REACTIONS (4)
  - ECTOPIC PREGNANCY [None]
  - MATERNAL EXPOSURE DURING PREGNANCY [None]
  - MUSCLE SPASMS [None]
  - VAGINAL HAEMORRHAGE [None]
